FAERS Safety Report 4809263-1 (Version None)
Quarter: 2005Q4

REPORT INFORMATION
  Report Type: 
  Country: None (occurrence: None)
  Receive Date: 20051025
  Receipt Date: 20050523
  Transmission Date: 20060501
  Serious: Yes (Death, Other)
  Sender: FDA-Public Use
  Company Number: PHFR2005GB01884

PATIENT
  Age: 85 Year
  Sex: Female

DRUGS (2)
  1. VOLTAROL [Suspect]
     Indication: PAIN
     Route: 048
     Dates: end: 20040920
  2. LANSOPRAZOLE [Concomitant]
     Route: 065

REACTIONS (11)
  - APPETITE DISORDER [None]
  - ASTHENIA [None]
  - CLOSTRIDIAL INFECTION [None]
  - DEPRESSION [None]
  - DIET REFUSAL [None]
  - FALL [None]
  - GASTRIC ULCER [None]
  - HAEMATEMESIS [None]
  - HELICOBACTER PYLORI IDENTIFICATION TEST NEGATIVE [None]
  - OESOPHAGITIS [None]
  - PUBIC RAMI FRACTURE [None]
